FAERS Safety Report 18748866 (Version 1)
Quarter: 2021Q1

REPORT INFORMATION
  Report Type: Spontaneous
  Country: FR (occurrence: FR)
  Receive Date: 20210115
  Receipt Date: 20210115
  Transmission Date: 20210419
  Serious: Yes (Hospitalization, Other)
  Sender: FDA-Public Use
  Company Number: FR-ANIPHARMA-2021-FR-000007

PATIENT
  Age: 63 Year
  Sex: Female

DRUGS (12)
  1. LEVOFLOXACIN. [Concomitant]
     Active Substance: LEVOFLOXACIN
     Dosage: UNKNOWN DOSE AND FREQUENCY
     Route: 065
  2. CANDESARTAN CILEXETIL. [Suspect]
     Active Substance: CANDESARTAN CILEXETIL
     Indication: PRODUCT USED FOR UNKNOWN INDICATION
     Dosage: UNKNOWN DOSE AND FREQUENCY
     Route: 048
  3. PYOSTACINE [Concomitant]
     Active Substance: PRISTINAMYCIN
     Dosage: UNKNOWN DOSE AND FREQUENCY
     Route: 065
  4. SKENAN [Concomitant]
     Active Substance: MORPHINE SULFATE
     Dosage: UNKNOWN DOSE AND FREQUENCY
     Route: 065
  5. CELIPROLOL [Concomitant]
     Active Substance: CELIPROLOL
     Dosage: UNKNOWN DOSE AND FREQUENCY
     Route: 065
  6. DOLIPRANE [Concomitant]
     Active Substance: ACETAMINOPHEN
     Dosage: UNKNOWN DOSE AND FREQUENCY
     Route: 065
  7. TRAMADOL HYDROCHLORIDE. [Concomitant]
     Active Substance: TRAMADOL HYDROCHLORIDE
     Dosage: UNKNOWN DOSE AND FREQUENCY
     Route: 065
  8. HYDROCHLOROTHIAZIDE. [Concomitant]
     Active Substance: HYDROCHLOROTHIAZIDE
     Dosage: UNKNOWN DOSE AND FREQUENCY
     Route: 065
  9. TAVANIC [Concomitant]
     Active Substance: LEVOFLOXACIN
     Dosage: UNKNOWN DOSE AND FREQUENCY
     Route: 065
  10. CLAFORAN [Concomitant]
     Active Substance: CEFOTAXIME SODIUM
     Dosage: UNKNOWN DOSE AND FREQUENC
     Route: 065
  11. ACTISKENAN [Concomitant]
     Active Substance: MORPHINE SULFATE
     Dosage: UNKNOWN DOSE AND FREQUENCY
     Route: 065
  12. OPDIVO [Suspect]
     Active Substance: NIVOLUMAB
     Dosage: 240 MG ONE IN TOTAL
     Route: 042
     Dates: start: 20201106, end: 20201106

REACTIONS (2)
  - Eosinophilia [Recovered/Resolved]
  - Capillary leak syndrome [Recovered/Resolved]

NARRATIVE: CASE EVENT DATE: 20201107
